FAERS Safety Report 24192401 (Version 1)
Quarter: 2024Q3

REPORT INFORMATION
  Report Type: Spontaneous
  Country: US (occurrence: US)
  Receive Date: 20240809
  Receipt Date: 20240809
  Transmission Date: 20241016
  Serious: Yes (Hospitalization, Disabling, Other)
  Sender: INTERCEPT PHARMACEUTICALS
  Company Number: US-INTERCEPT-PM2024001556

PATIENT
  Age: 85 Year
  Sex: Male
  Weight: 81.179 kg

DRUGS (10)
  1. OCALIVA [Suspect]
     Active Substance: OBETICHOLIC ACID
     Indication: Primary biliary cholangitis
     Dosage: UNK
     Route: 048
  2. ROSUVASTATIN [Concomitant]
     Active Substance: ROSUVASTATIN\ROSUVASTATIN CALCIUM
  3. LACTULOSE [Concomitant]
     Active Substance: LACTULOSE
  4. SPIRONOLACTONE [Concomitant]
     Active Substance: SPIRONOLACTONE
  5. NIACIN [Concomitant]
     Active Substance: NIACIN
  6. RISEDRONATE SODIUM [Concomitant]
     Active Substance: RISEDRONATE SODIUM
  7. FUROSEMIDE [Concomitant]
     Active Substance: FUROSEMIDE
  8. IRON [Concomitant]
     Active Substance: IRON
  9. GEMTESA [Concomitant]
     Active Substance: VIBEGRON
  10. TYLENOL [Concomitant]
     Active Substance: ACETAMINOPHEN

REACTIONS (3)
  - Hepatic cirrhosis [Unknown]
  - Quality of life decreased [Unknown]
  - Product communication issue [Unknown]

NARRATIVE: CASE EVENT DATE: 20240131
